FAERS Safety Report 6921969-7 (Version None)
Quarter: 2010Q3

REPORT INFORMATION
  Report Type: 
  Country: None (occurrence: None)
  Receive Date: 20100812
  Receipt Date: 20100809
  Transmission Date: 20110219
  Serious: Yes (Other)
  Sender: FDA-Public Use
  Company Number: US-PFIZER INC-2010086848

PATIENT
  Sex: Female
  Weight: 56.689 kg

DRUGS (6)
  1. NICOTROL [Suspect]
     Indication: SMOKING CESSATION THERAPY
     Dosage: 10 MG, UNK
     Route: 055
     Dates: start: 20100702
  2. XANAX [Concomitant]
     Indication: ANXIETY
     Dosage: 2 MG, 2X/DAY
     Route: 048
  3. ATIVAN [Concomitant]
     Indication: ANXIETY
     Dosage: 1 MG, 2X/DAY
     Route: 048
  4. DIAZEPAM [Concomitant]
     Dosage: 15 MG, 1X/DAY
     Route: 048
  5. VITAMINS [Concomitant]
     Dosage: UNK
  6. OXYMORPHONE HYDROCHLORIDE [Concomitant]
     Dosage: UNK

REACTIONS (2)
  - CHOKING [None]
  - MEDICATION ERROR [None]
